FAERS Safety Report 14230476 (Version 3)
Quarter: 2018Q2

REPORT INFORMATION
  Report Type: Spontaneous
  Country: US (occurrence: US)
  Receive Date: 20171128
  Receipt Date: 20180628
  Transmission Date: 20180711
  Serious: Yes (Hospitalization)
  Sender: FDA-Public Use
  Company Number: US-OTSUKA-2016_029117

PATIENT
  Age: 32 Year
  Sex: Male
  Weight: 114 kg

DRUGS (8)
  1. RITALIN [Concomitant]
     Active Substance: METHYLPHENIDATE HYDROCHLORIDE
     Indication: PRODUCT USED FOR UNKNOWN INDICATION
     Dosage: 20 MG, UNK
     Route: 048
  2. ABILIFY [Suspect]
     Active Substance: ARIPIPRAZOLE
     Indication: MANIA
     Dosage: 15 MG, QD
     Route: 048
  3. ABILIFY [Suspect]
     Active Substance: ARIPIPRAZOLE
     Indication: PSYCHOTIC DISORDER
     Dosage: 30 MG, QD (IN THE MORNING)
     Route: 048
  4. VISTARIL [Concomitant]
     Active Substance: HYDROXYZINE PAMOATE
     Indication: RESTLESSNESS
  5. VISTARIL [Concomitant]
     Active Substance: HYDROXYZINE PAMOATE
     Indication: ANXIETY
     Dosage: 50 MG, Q8H
     Route: 048
  6. SEROQUEL [Concomitant]
     Active Substance: QUETIAPINE FUMARATE
     Indication: PRODUCT USED FOR UNKNOWN INDICATION
     Dosage: 300 MG, BID (AT BEDTIME AND MORNING)
     Route: 048
  7. PROZAC [Concomitant]
     Active Substance: FLUOXETINE HYDROCHLORIDE
     Indication: PRODUCT USED FOR UNKNOWN INDICATION
     Dosage: 20 MG, QD
     Route: 048
  8. POLY-VI-SOL [Concomitant]
     Active Substance: VITAMINS
     Indication: PRODUCT USED FOR UNKNOWN INDICATION
     Dosage: 1 DF, UNK
     Route: 065

REACTIONS (23)
  - Paronychia [Unknown]
  - Dyspnoea paroxysmal nocturnal [Unknown]
  - Depressed mood [Unknown]
  - Chest discomfort [Unknown]
  - Sinus tachycardia [Unknown]
  - Productive cough [Unknown]
  - Persecutory delusion [Unknown]
  - Psychotic disorder [Recovered/Resolved]
  - Facial pain [Unknown]
  - Initial insomnia [Unknown]
  - Mania [Recovered/Resolved]
  - Tendon injury [Unknown]
  - Compulsive sexual behaviour [Unknown]
  - Fatigue [Unknown]
  - Condition aggravated [Unknown]
  - Asthenia [Unknown]
  - Gambling disorder [Unknown]
  - Somnolence [Unknown]
  - Loss of personal independence in daily activities [Unknown]
  - Deafness [Unknown]
  - Ligament sprain [Unknown]
  - Pain in extremity [Unknown]
  - Product use in unapproved indication [Unknown]
